FAERS Safety Report 9444906 (Version 1)
Quarter: 2013Q3

REPORT INFORMATION
  Report Type: Spontaneous
  Country: CH (occurrence: CH)
  Receive Date: 20130807
  Receipt Date: 20130807
  Transmission Date: 20140515
  Serious: Yes (Other)
  Sender: FDA-Public Use
  Company Number: PHHY2013CH084040

PATIENT
  Age: 5 Month
  Sex: Female

DRUGS (6)
  1. VALPROIC ACID [Suspect]
     Indication: INFANTILE SPASMS
     Dosage: 30 MG/KG/DAY
  2. VALPROIC ACID [Suspect]
     Indication: CONVULSION
  3. VIGABATRIN [Concomitant]
     Indication: INFANTILE SPASMS
     Dosage: 150 MG/KG/DAY
  4. SULTIAME [Concomitant]
     Indication: INFANTILE SPASMS
  5. SYNACTEN [Concomitant]
     Indication: INFECTION
     Dosage: 0.025 MG/KG/DAY
  6. METHYLPREDNISOLONE [Concomitant]
     Indication: INFANTILE SPASMS
     Dosage: 15 MG/KG/DAY

REACTIONS (3)
  - Hypokalaemia [Recovered/Resolved]
  - Gamma-glutamyltransferase increased [Recovered/Resolved]
  - Thrombocytopenia [Recovered/Resolved]
